FAERS Safety Report 21414368 (Version 1)
Quarter: 2022Q4

REPORT INFORMATION
  Report Type: Spontaneous
  Country: US (occurrence: US)
  Receive Date: 20221006
  Receipt Date: 20221006
  Transmission Date: 20230112
  Serious: No
  Sender: FDA-Public Use
  Company Number: US-ALLERGAN-2227286US

PATIENT
  Sex: Female

DRUGS (3)
  1. QULIPTA [Suspect]
     Active Substance: ATOGEPANT
     Indication: Migraine
     Dosage: 10 MG
     Dates: start: 2022, end: 2022
  2. QULIPTA [Suspect]
     Active Substance: ATOGEPANT
     Dosage: 30 MG
     Dates: start: 2022, end: 2022
  3. QULIPTA [Suspect]
     Active Substance: ATOGEPANT
     Dosage: 60 MG

REACTIONS (2)
  - Gastrointestinal disorder [Not Recovered/Not Resolved]
  - Constipation [Not Recovered/Not Resolved]
